FAERS Safety Report 12708147 (Version 1)
Quarter: 2016Q3

REPORT INFORMATION
  Report Type: Spontaneous
  Country: CA (occurrence: CA)
  Receive Date: 20160901
  Receipt Date: 20160901
  Transmission Date: 20161109
  Serious: Yes (Other)
  Sender: FDA-Public Use
  Company Number: CA-PFIZER INC-3195047

PATIENT
  Age: 58 Year
  Sex: Female

DRUGS (8)
  1. ISOFLURANE. [Suspect]
     Active Substance: ISOFLURANE
     Indication: THERAPEUTIC PROCEDURE
  2. LEVETIRACETAM. [Concomitant]
     Active Substance: LEVETIRACETAM
     Indication: THERAPEUTIC PROCEDURE
  3. PHENOBARBITAL. [Concomitant]
     Active Substance: PHENOBARBITAL
     Indication: THERAPEUTIC PROCEDURE
     Dosage: 150 MG, FREQ:1 HOUR; INTERVAL:12
     Route: 049
  4. MIDAZOLAM [Suspect]
     Active Substance: MIDAZOLAM\MIDAZOLAM HYDROCHLORIDE
     Indication: THERAPEUTIC PROCEDURE
  5. KETAMINE [Concomitant]
     Active Substance: KETAMINE
     Indication: THERAPEUTIC PROCEDURE
  6. PROPOFOL. [Suspect]
     Active Substance: PROPOFOL
     Indication: THERAPEUTIC PROCEDURE
  7. PHENYTOIN. [Concomitant]
     Active Substance: PHENYTOIN
     Indication: THERAPEUTIC PROCEDURE
  8. VALPROIC ACID. [Concomitant]
     Active Substance: VALPROIC ACID
     Indication: THERAPEUTIC PROCEDURE

REACTIONS (1)
  - Intestinal ischaemia [Unknown]
